FAERS Safety Report 12420716 (Version 1)
Quarter: 2016Q2

REPORT INFORMATION
  Report Type: Spontaneous
  Country: FR (occurrence: FR)
  Receive Date: 20160531
  Receipt Date: 20160531
  Transmission Date: 20160815
  Serious: Yes (Hospitalization)
  Sender: FDA-Public Use
  Company Number: FR-BAYER-2016-098207

PATIENT
  Age: 66 Year
  Sex: Female

DRUGS (16)
  1. AFINITOR [Suspect]
     Active Substance: EVEROLIMUS
     Indication: INVASIVE DUCTAL BREAST CARCINOMA
     Dosage: UNK
     Route: 048
     Dates: start: 20130818, end: 20130826
  2. EXEMESTANE. [Suspect]
     Active Substance: EXEMESTANE
     Indication: INVASIVE DUCTAL BREAST CARCINOMA
     Dosage: UNK
     Route: 048
     Dates: start: 201303
  3. PYOSTACINE [Suspect]
     Active Substance: PRISTINAMYCIN
     Indication: LOCALISED INFECTION
     Dosage: UNK
     Route: 048
     Dates: start: 201307, end: 201308
  4. AFINITOR [Suspect]
     Active Substance: EVEROLIMUS
     Indication: INVASIVE DUCTAL BREAST CARCINOMA
     Dosage: DAILY DOSE 10 MG
     Route: 048
     Dates: start: 201307, end: 20130810
  5. LEVOTHYROX [Concomitant]
     Active Substance: LEVOTHYROXINE
     Dosage: UNK
  6. AFINITOR [Suspect]
     Active Substance: EVEROLIMUS
     Indication: INVASIVE DUCTAL BREAST CARCINOMA
     Dosage: UNK
     Dates: start: 20130927
  7. ZOMETA [Concomitant]
     Active Substance: ZOLEDRONIC ACID
     Dosage: UNK
  8. INEXIUM [Concomitant]
     Active Substance: ESOMEPRAZOLE
     Dosage: UNK
  9. FLAGYL [Concomitant]
     Active Substance: METRONIDAZOLE\METRONIDAZOLE HYDROCHLORIDE
     Dosage: UNK
  10. DIFFU K [Concomitant]
     Active Substance: POTASSIUM CHLORIDE
  11. TOPALGIC [TRAMADOL HYDROCHLORIDE] [Concomitant]
     Active Substance: TRAMADOL HYDROCHLORIDE
     Dosage: UNK
  12. CIFLOX [Suspect]
     Active Substance: CIPROFLOXACIN
     Indication: LOCALISED INFECTION
     Dosage: UNK
     Route: 048
     Dates: start: 201307, end: 201308
  13. PROZAC [Concomitant]
     Active Substance: FLUOXETINE HYDROCHLORIDE
     Dosage: UNK
  14. SERESTA [Concomitant]
     Active Substance: OXAZEPAM
     Dosage: UNK
  15. TOPALGIC LP [Concomitant]
     Active Substance: TRAMADOL
     Dosage: UNK
  16. FLAGYL [Concomitant]
     Active Substance: METRONIDAZOLE\METRONIDAZOLE HYDROCHLORIDE
     Dosage: UNK
     Dates: start: 20130807, end: 20130818

REACTIONS (5)
  - Hypokalaemia [Recovered/Resolved]
  - Vomiting [Recovered/Resolved]
  - Condition aggravated [Recovered/Resolved]
  - Hyperthermia [Recovered/Resolved]
  - Clostridium difficile colitis [Recovered/Resolved]

NARRATIVE: CASE EVENT DATE: 20130806
